FAERS Safety Report 6884290-1 (Version None)
Quarter: 2010Q3

REPORT INFORMATION
  Report Type: 
  Country: None (occurrence: None)
  Receive Date: 20100729
  Receipt Date: 20100714
  Transmission Date: 20110219
  Serious: Yes (Hospitalization, Other)
  Sender: FDA-Public Use
  Company Number: PHHY2010JP46549

PATIENT
  Age: 18 Year
  Sex: Male
  Weight: 45.3 kg

DRUGS (5)
  1. NEORAL [Suspect]
     Indication: RENAL TRANSPLANT
     Route: 048
  2. SANDIMMUNE [Suspect]
     Indication: RENAL TRANSPLANT
     Route: 042
  3. MYCOPHENOLATE MOFETIL [Suspect]
     Indication: RENAL TRANSPLANT
     Route: 048
  4. METHYLPREDNISOLONE [Suspect]
     Indication: RENAL TRANSPLANT
     Dosage: UNK
     Route: 042
  5. SIMULECT [Concomitant]
     Indication: RENAL TRANSPLANT
     Route: 042

REACTIONS (8)
  - ACIDOSIS [None]
  - COLITIS [None]
  - CYTOMEGALOVIRUS INFECTION [None]
  - DECREASED APPETITE [None]
  - DEHYDRATION [None]
  - KIDNEY TRANSPLANT REJECTION [None]
  - NEPHROPATHY TOXIC [None]
  - URINARY TRACT INFECTION [None]
